FAERS Safety Report 6622764-9 (Version None)
Quarter: 2010Q1

REPORT INFORMATION
  Report Type: 
  Country: None (occurrence: None)
  Receive Date: 20100310
  Receipt Date: 20100302
  Transmission Date: 20100710
  Serious: Yes (Other)
  Sender: FDA-Public Use
  Company Number: US-RB-004329-10

PATIENT
  Age: 62 Year
  Sex: Male

DRUGS (2)
  1. MUCINEX D [Suspect]
     Route: 048
  2. MUCINEX D MAXIMUM STRENGTH [Suspect]
     Dosage: TWO TABLETS EVERY 12 HOURS FOR 6 PILLS.
     Route: 048
     Dates: end: 20100301

REACTIONS (2)
  - ACCIDENTAL OVERDOSE [None]
  - VENTRICULAR TACHYCARDIA [None]
